FAERS Safety Report 7898119-6 (Version None)
Quarter: 2011Q4

REPORT INFORMATION
  Report Type: 
  Country: None (occurrence: None)
  Receive Date: 20111107
  Receipt Date: 20111102
  Transmission Date: 20120403
  Serious: Yes (Death)
  Sender: FDA-Public Use
  Company Number: US-PFIZER INC-2011268277

PATIENT
  Sex: Male

DRUGS (12)
  1. FLONASE [Concomitant]
     Dosage: 0.05% SPR
  2. ALBUTEROL [Concomitant]
     Dosage: 0.63MG/3 NEB
  3. SPIRIVA [Concomitant]
  4. GUAIFENESIN [Concomitant]
     Dosage: 100/5ML SYP
  5. FLOVENT [Concomitant]
     Dosage: 110 UG, AER
  6. CENTRUM SILVER [Concomitant]
  7. MICARDIS [Concomitant]
     Dosage: 80 MG, UNK
  8. XOPENEX [Concomitant]
     Dosage: 1.25/3ML NEB
  9. NEXIUM [Concomitant]
     Dosage: 40 MG, UNK
  10. SUTENT [Suspect]
     Dosage: 37.5 MG, 1X/DAY, FOR 4 WEEKS ON AND 2 WEEKS OFF
  11. ZOCOR [Concomitant]
     Dosage: 80 MG, UNK
  12. TERAZOSIN [Concomitant]
     Dosage: 5 MG, UNK

REACTIONS (1)
  - DEATH [None]
